FAERS Safety Report 8540806-0 (Version None)
Quarter: 2012Q3

REPORT INFORMATION
  Report Type: 
  Country: None (occurrence: None)
  Receive Date: 20120726
  Receipt Date: 20120716
  Transmission Date: 20120928
  Serious: Yes (Hospitalization, Disabling, Other)
  Sender: FDA-Public Use
  Company Number: US-009507513-1202USA03508

PATIENT

DRUGS (4)
  1. FOSAMAX [Suspect]
     Indication: OSTEOPENIA
     Dosage: 5 MG, UNK
     Route: 048
     Dates: start: 20000630, end: 20000731
  2. FOSAMAX PLUS D [Suspect]
     Indication: OSTEOPENIA
  3. FOSAMAX [Suspect]
     Indication: OSTEOPOROSIS
     Dosage: 70 MG, UNK
     Route: 048
     Dates: start: 20000601, end: 20071201
  4. FOSAMAX PLUS D [Suspect]
     Indication: OSTEOPOROSIS
     Dosage: 70 MG, UNK
     Route: 048
     Dates: start: 20080101, end: 20081101

REACTIONS (17)
  - NASAL DISORDER [None]
  - FEMUR FRACTURE [None]
  - VAGINAL DISORDER [None]
  - SPINAL OSTEOARTHRITIS [None]
  - CYSTOCELE [None]
  - ARTHRITIS [None]
  - LOW TURNOVER OSTEOPATHY [None]
  - VITAMIN D DEFICIENCY [None]
  - CORNEAL DYSTROPHY [None]
  - CALCULUS URETERIC [None]
  - TOOTH DISORDER [None]
  - DYSLIPIDAEMIA [None]
  - RECTOCELE [None]
  - CERVICAL DYSPLASIA [None]
  - UTERINE DISORDER [None]
  - PAIN IN EXTREMITY [None]
  - OSTEOPENIA [None]
